FAERS Safety Report 25362054 (Version 1)
Quarter: 2025Q2

REPORT INFORMATION
  Report Type: Spontaneous
  Country: CH (occurrence: CH)
  Receive Date: 20250527
  Receipt Date: 20250527
  Transmission Date: 20250717
  Serious: Yes (Other)
  Sender: RANBAXY
  Company Number: CH-SUN PHARMACEUTICAL INDUSTRIES LTD-2025R1-508526

PATIENT
  Age: 35 Year
  Sex: Male

DRUGS (7)
  1. BRIVARACETAM [Suspect]
     Active Substance: BRIVARACETAM
     Indication: Seizure
     Route: 065
  2. LAMOTRIGINE [Suspect]
     Active Substance: LAMOTRIGINE
     Indication: Seizure
     Route: 065
  3. LEVETIRACETAM [Suspect]
     Active Substance: LEVETIRACETAM
     Indication: Seizure
     Route: 065
  4. PERAMPANEL [Suspect]
     Active Substance: PERAMPANEL
     Indication: Seizure
     Route: 065
  5. TOPIRAMATE [Suspect]
     Active Substance: TOPIRAMATE
     Indication: Seizure
     Route: 065
  6. VALPROIC ACID [Suspect]
     Active Substance: VALPROIC ACID
     Indication: Seizure
     Route: 065
  7. ZONISAMIDE [Suspect]
     Active Substance: ZONISAMIDE
     Indication: Seizure
     Route: 065

REACTIONS (4)
  - Therapeutic product effect incomplete [Unknown]
  - Condition aggravated [Unknown]
  - Nausea [Unknown]
  - Food intolerance [Unknown]
